FAERS Safety Report 9079241 (Version 1)
Quarter: 2013Q1

REPORT INFORMATION
  Report Type: Spontaneous
  Country: CA (occurrence: CA)
  Receive Date: 20130130
  Receipt Date: 20130130
  Transmission Date: 20140127
  Serious: Yes (Hospitalization)
  Sender: FDA-Public Use
  Company Number: CA-009507513-1301CAN014002

PATIENT
  Age: 83 Year
  Sex: Female

DRUGS (8)
  1. SINEMET [Suspect]
     Indication: PARKINSON^S DISEASE
     Dosage: 5 DF, QD
  2. PRAMIPEXOLE [Concomitant]
  3. COVERSYL (PERINDOPRIL ARGININE) [Concomitant]
  4. ASPIRIN [Concomitant]
  5. NITROGLYCERIN [Concomitant]
  6. IRON (UNSPECIFIED) [Concomitant]
  7. MAGNESIUM (UNSPECIFIED) [Concomitant]
  8. TYLENOL [Concomitant]

REACTIONS (2)
  - Cardiac failure congestive [Unknown]
  - Liver function test abnormal [Not Recovered/Not Resolved]
